FAERS Safety Report 24872552 (Version 1)
Quarter: 2025Q1

REPORT INFORMATION
  Report Type: Spontaneous
  Country: US (occurrence: US)
  Receive Date: 20250122
  Receipt Date: 20250122
  Transmission Date: 20250409
  Serious: No
  Sender: NANJING KING-FRIEND BIOCHEMICAL PHARMACEUTICAL
  Company Number: US-NKFPHARMA-2024MPSPO00043

PATIENT
  Age: 49 Year
  Sex: Female
  Weight: 125 kg

DRUGS (2)
  1. ENOXAPARIN SODIUM [Suspect]
     Active Substance: ENOXAPARIN SODIUM
     Indication: Prolapse repair
     Route: 058
     Dates: start: 20240215, end: 20240309
  2. ENOXAPARIN SODIUM [Suspect]
     Active Substance: ENOXAPARIN SODIUM

REACTIONS (4)
  - Product dose omission issue [Unknown]
  - Product packaging quantity issue [Unknown]
  - Syringe issue [Unknown]
  - Device deployment issue [Unknown]
